FAERS Safety Report 16420705 (Version 2)
Quarter: 2019Q3

REPORT INFORMATION
  Report Type: Spontaneous
  Country: US (occurrence: US)
  Receive Date: 20190612
  Receipt Date: 20190708
  Transmission Date: 20191004
  Serious: Yes (Other)
  Sender: FDA-Public Use
  Company Number: US-JNJFOC-20190613105

PATIENT
  Sex: Female

DRUGS (1)
  1. INVEGA [Suspect]
     Active Substance: PALIPERIDONE
     Indication: ANTISOCIAL PERSONALITY DISORDER
     Route: 048
     Dates: start: 20190401, end: 20190422

REACTIONS (9)
  - Hypersomnia [Unknown]
  - General physical health deterioration [Unknown]
  - Off label use [Unknown]
  - Tremor [Unknown]
  - Product use in unapproved indication [Unknown]
  - Drug ineffective [Unknown]
  - Blindness [Unknown]
  - Extraocular muscle paresis [Unknown]
  - Fatigue [Unknown]
